FAERS Safety Report 10922243 (Version 1)
Quarter: 2015Q1

REPORT INFORMATION
  Report Type: Spontaneous
  Country: ES (occurrence: None)
  Receive Date: 20150312
  Receipt Date: 20150312
  Transmission Date: 20150721
  Serious: Yes (Death, Other)
  Sender: FDA-Public Use
  Company Number: 2274532

PATIENT
  Age: 60 Year
  Sex: Male

DRUGS (3)
  1. OXALIPLATIN. [Suspect]
     Active Substance: OXALIPLATIN
     Indication: ADENOCARCINOMA OF COLON
     Dosage: 130 MG/M 2 MILLIGRAM(S)/SQ. METER, 1 DAY, UNKNOWN??
     Dates: end: 20100831
  2. IRINOTECAN HYDROCHLORIDE. [Suspect]
     Active Substance: IRINOTECAN HYDROCHLORIDE
     Indication: ADENOCARCINOMA OF COLON
     Dosage: 350 MG/M 2 MILLIGRAM(S) /SQ. METER, CYCLICAL, UNKNOWN
     Dates: start: 20100927, end: 20110309
  3. RALTITREXED DISODIUM [Concomitant]
     Active Substance: RALTITREXED
     Indication: ADENOCARCINOMA OF COLON
     Dosage: 3 MG/M 2 MILLIGRAM(S) /SQ. METER (1 DAY), UNKNOWN?
     Dates: end: 20100831

REACTIONS (3)
  - Asthenia [None]
  - Hepatic failure [None]
  - Disease progression [None]

NARRATIVE: CASE EVENT DATE: 20100924
